FAERS Safety Report 4498456-1 (Version None)
Quarter: 2004Q4

REPORT INFORMATION
  Report Type: 
  Country: None (occurrence: None)
  Receive Date: 20041105
  Receipt Date: 20041026
  Transmission Date: 20050328
  Serious: Yes (Other)
  Sender: FDA-Public Use
  Company Number: 2004084534

PATIENT

DRUGS (1)
  1. ATORVASTATIN (ATORVASTATIN0 [Suspect]
     Indication: ILL-DEFINED DISORDER
     Dosage: ORAL
     Route: 048

REACTIONS (2)
  - PANCREATITIS [None]
  - POST PROCEDURAL COMPLICATION [None]
